FAERS Safety Report 24141004 (Version 1)
Quarter: 2024Q3

REPORT INFORMATION
  Report Type: Spontaneous
  Country: US (occurrence: None)
  Receive Date: 20240726
  Receipt Date: 20240726
  Transmission Date: 20241016
  Serious: Yes (Other)
  Sender: ASTRAZENECA
  Company Number: 2024A165878

PATIENT
  Sex: Female

DRUGS (1)
  1. LYNPARZA [Suspect]
     Active Substance: OLAPARIB
     Route: 048

REACTIONS (10)
  - Neoplasm malignant [Unknown]
  - Fatigue [Unknown]
  - Diarrhoea [Unknown]
  - Dyspnoea [Unknown]
  - Alopecia [Unknown]
  - Neuropathy peripheral [Unknown]
  - Illness [Unknown]
  - Constipation [Unknown]
  - Anaemia [Unknown]
  - Off label use [Unknown]
